FAERS Safety Report 9394850 (Version 5)
Quarter: 2013Q3

REPORT INFORMATION
  Report Type: Report from Study
  Country: CZ (occurrence: CZ)
  Receive Date: 20130711
  Receipt Date: 20130924
  Transmission Date: 20140515
  Serious: Yes (Hospitalization)
  Sender: FDA-Public Use
  Company Number: CZ-JNJFOC-20130702595

PATIENT
  Age: 74 Year
  Sex: Male
  Weight: 92 kg

DRUGS (9)
  1. CANAGLIFLOZIN [Suspect]
     Route: 048
  2. CANAGLIFLOZIN [Suspect]
     Indication: TYPE 2 DIABETES MELLITUS
     Route: 048
     Dates: start: 20101116, end: 20130218
  3. GLIMEPIRIDE [Concomitant]
     Indication: TYPE 2 DIABETES MELLITUS
     Dates: start: 20050418
  4. NOVOMIX 30 [Concomitant]
     Indication: TYPE 2 DIABETES MELLITUS
     Dates: start: 20130325
  5. TRITACE [Concomitant]
     Indication: HYPERTENSION
     Route: 048
     Dates: start: 20071101
  6. APO-OME [Concomitant]
     Indication: DYSPEPSIA
     Route: 048
     Dates: start: 2009
  7. FOKUSIN [Concomitant]
     Indication: BENIGN PROSTATIC HYPERPLASIA
     Route: 048
     Dates: start: 2005
  8. TROSPIUM CHLORIDE [Concomitant]
     Indication: DYSPEPSIA
     Route: 048
     Dates: start: 2005
  9. ASCORUTIN [Concomitant]
     Route: 048
     Dates: start: 201212

REACTIONS (1)
  - Bladder transitional cell carcinoma [Not Recovered/Not Resolved]
